FAERS Safety Report 5974559-7 (Version None)
Quarter: 2008Q4

REPORT INFORMATION
  Report Type: 
  Country: None (occurrence: None)
  Receive Date: 20081201
  Receipt Date: 20081125
  Transmission Date: 20090506
  Serious: Yes (Other)
  Sender: FDA-Public Use
  Company Number: CN-PFIZER INC-2008099732

PATIENT
  Age: 54 Year
  Sex: Female

DRUGS (5)
  1. ATORVASTATIN CALCIUM [Suspect]
     Indication: DYSLIPIDAEMIA
     Route: 048
     Dates: start: 20061101, end: 20060101
  2. NIFEDIPINE [Suspect]
     Route: 048
     Dates: start: 20061101, end: 20060101
  3. ENALAPRIL MALEATE [Suspect]
     Indication: HYPERTENSION
     Route: 048
     Dates: start: 20061101, end: 20060101
  4. ENALAPRIL MALEATE [Suspect]
     Route: 048
     Dates: start: 20061101, end: 20060101
  5. AZITHROMYCIN [Suspect]
     Route: 042

REACTIONS (9)
  - ALOPECIA [None]
  - ARTHRALGIA [None]
  - COUGH [None]
  - DIARRHOEA [None]
  - GINGIVAL ATROPHY [None]
  - HAEMATURIA [None]
  - HAEMOPTYSIS [None]
  - MALAISE [None]
  - MYALGIA [None]
